FAERS Safety Report 18547526 (Version 1)
Quarter: 2020Q4

REPORT INFORMATION
  Report Type: Report from Study
  Country: DE (occurrence: DE)
  Receive Date: 20201125
  Receipt Date: 20201125
  Transmission Date: 20210114
  Serious: Yes (Other)
  Sender: FDA-Public Use
  Company Number: DE-GILEAD-2020-0504144

PATIENT
  Age: 31 Year
  Sex: Male
  Weight: 78 kg

DRUGS (22)
  1. AZITHROMYCIN TEVA [Concomitant]
     Active Substance: AZITHROMYCIN
  2. AMOXICILLIN. [Concomitant]
     Active Substance: AMOXICILLIN
  3. PEGASYS [Concomitant]
     Active Substance: PEGINTERFERON ALFA-2A
  4. BISOPROLOL RATIOPHARM [Concomitant]
     Active Substance: BISOPROLOL
  5. PARACETAMOL [Concomitant]
     Active Substance: ACETAMINOPHEN
  6. LEVOFLOXACIN. [Concomitant]
     Active Substance: LEVOFLOXACIN
  7. CIPRO BASICS [Concomitant]
     Active Substance: CIPROFLOXACIN HYDROCHLORIDE
  8. EMTRICITABINE;TENOFOVIR DISOPROXIL FUMARATE [Suspect]
     Active Substance: EMTRICITABINE\TENOFOVIR DISOPROXIL FUMARATE
     Indication: HIV INFECTION
     Dosage: 1 DOSAGE FORM, QD
     Route: 065
  9. TANTUM VERDE [Concomitant]
     Active Substance: BENZYDAMINE HYDROCHLORIDE
  10. ACICLOVIR [Concomitant]
     Active Substance: ACYCLOVIR
  11. CITALOPRAM [Concomitant]
     Active Substance: CITALOPRAM HYDROBROMIDE
  12. DOXYCYCLIN [DOXYCYCLINE] [Concomitant]
     Active Substance: DOXYCYCLINE
  13. CLARILIND [Concomitant]
     Active Substance: CLARITHROMYCIN
  14. TARDOCILLIN [BENZATHINE BENZYLPENICILLIN;TOLYCAINE HYDROCHLORIDE] [Concomitant]
  15. DEKRISTOL [Concomitant]
     Active Substance: CHOLECALCIFEROL
  16. AQUACORT [BUDESONIDE] [Concomitant]
  17. CEFTRIAXON [Concomitant]
     Active Substance: CEFTRIAXONE
  18. RALTEGRAVIR. [Concomitant]
     Active Substance: RALTEGRAVIR
  19. MENINGOCOCCAL POLYSACCHARIDE VACCINE A NOS [Concomitant]
     Active Substance: MENINGOCOCCAL POLYSACCHARIDE VACCINE A\NEISSERIA MENINGITIDIS GROUP A CAPSULAR POLYSACCHARIDE ANTIGEN
  20. FUCICORT [Concomitant]
     Active Substance: BETAMETHASONE VALERATE\FUSIDIC ACID
  21. PREDNISOLON [PREDNISOLONE] [Concomitant]
     Active Substance: PREDNISOLONE
  22. SILDENAFIL. [Concomitant]
     Active Substance: SILDENAFIL

REACTIONS (3)
  - Gonorrhoea [Recovered/Resolved]
  - Pharyngitis [Recovering/Resolving]
  - Meningococcal infection [Recovered/Resolved]

NARRATIVE: CASE EVENT DATE: 20131002
